FAERS Safety Report 8801242 (Version 6)
Quarter: 2014Q1

REPORT INFORMATION
  Report Type: Report from Study
  Country: PL (occurrence: PL)
  Receive Date: 20120921
  Receipt Date: 20140224
  Transmission Date: 20141002
  Serious: Yes (Hospitalization, Other)
  Sender: FDA-Public Use
  Company Number: PL-AMGEN-POLCT2012055467

PATIENT
  Age: 33 Year
  Sex: Female

DRUGS (2)
  1. ROMIPLOSTIM [Suspect]
     Indication: IMMUNE THROMBOCYTOPENIC PURPURA
     Dosage: 3 MUG/KG, QWK
     Route: 058
     Dates: start: 20120606, end: 20120829
  2. METHYLPREDNISOLONE [Concomitant]
     Dosage: 4 MG, UNK
     Route: 048

REACTIONS (1)
  - Transaminases increased [Recovered/Resolved]
